FAERS Safety Report 8351766 (Version 2)
Quarter: 2014Q3

REPORT INFORMATION
  Report Type: Spontaneous
  Country: US (occurrence: US)
  Receive Date: 20120124
  Receipt Date: 20140721
  Transmission Date: 20150326
  Serious: Yes (Hospitalization)
  Sender: FDA-Public Use
  Company Number: US-GLAXOSMITHKLINE-B0718238A

PATIENT
  Sex: Male

DRUGS (1)
  1. AVANDIA [Suspect]
     Active Substance: ROSIGLITAZONE MALEATE
     Indication: DIABETES MELLITUS
     Dosage: 4MG TWICE PER DAY
     Route: 048
     Dates: start: 19990824, end: 20000417

REACTIONS (5)
  - Stent placement [Unknown]
  - Cardiac failure congestive [Unknown]
  - Arrhythmia [Unknown]
  - Myocardial infarction [Unknown]
  - Renal failure [Recovering/Resolving]
